FAERS Safety Report 16510971 (Version 1)
Quarter: 2019Q3

REPORT INFORMATION
  Report Type: Spontaneous
  Country: US (occurrence: US)
  Receive Date: 20190521
  Receipt Date: 20190521
  Transmission Date: 20191004
  Serious: Yes (Other)
  Sender: FDA-Public Use
  Company Number: None

PATIENT
  Sex: Male

DRUGS (9)
  1. CLARITIN [Concomitant]
     Active Substance: LORATADINE
  2. LOPERAMIDE [Concomitant]
     Active Substance: LOPERAMIDE
  3. ESBRIET [Suspect]
     Active Substance: PIRFENIDONE
     Indication: IDIOPATHIC PULMONARY FIBROSIS
     Route: 048
     Dates: start: 20180210
  4. PIOGLITAZONE. [Concomitant]
     Active Substance: PIOGLITAZONE
  5. METFORMIN [Concomitant]
     Active Substance: METFORMIN HYDROCHLORIDE
  6. DOXYCYCL HYC [Concomitant]
  7. SIMVASTATIN. [Concomitant]
     Active Substance: SIMVASTATIN
  8. ASPIRN [Concomitant]
     Active Substance: ASPIRIN
  9. LOSARTAN POT [Concomitant]
     Active Substance: LOSARTAN POTASSIUM

REACTIONS (2)
  - Product dose omission [None]
  - Nephrolithiasis [None]
